FAERS Safety Report 21727273 (Version 1)
Quarter: 2022Q4

REPORT INFORMATION
  Report Type: Spontaneous
  Country: US (occurrence: None)
  Receive Date: 20221213
  Receipt Date: 20221213
  Transmission Date: 20230113
  Serious: Yes (Other)
  Sender: FDA-Public Use
  Company Number: None

PATIENT
  Age: 71 Year
  Sex: Male

DRUGS (1)
  1. LENALIDOMIDE [Suspect]
     Active Substance: LENALIDOMIDE
     Indication: Plasma cell myeloma
     Dosage: FREQUENCY : DAILY;?
     Route: 048
     Dates: start: 20201119

REACTIONS (5)
  - Transient ischaemic attack [None]
  - Hypoaesthesia [None]
  - Musculoskeletal stiffness [None]
  - Blood pressure fluctuation [None]
  - Blood calcium decreased [None]

NARRATIVE: CASE EVENT DATE: 20221127
